FAERS Safety Report 9449879 (Version 5)
Quarter: 2017Q1

REPORT INFORMATION
  Report Type: Report from Study
  Country: US (occurrence: US)
  Receive Date: 20130809
  Receipt Date: 20170217
  Transmission Date: 20170429
  Serious: Yes (Hospitalization)
  Sender: FDA-Public Use
  Company Number: US-JNJFOC-20130802382

PATIENT
  Age: 51 Year
  Sex: Male
  Weight: 176.45 kg

DRUGS (19)
  1. ALBUTEROL. [Concomitant]
     Active Substance: ALBUTEROL
     Route: 065
  2. METHOTREXATE. [Concomitant]
     Active Substance: METHOTREXATE
     Route: 048
     Dates: start: 20070910
  3. FLEXERIL [Concomitant]
     Active Substance: CYCLOBENZAPRINE HYDROCHLORIDE
     Indication: PAIN
     Dosage: AS NEEDED FOR SPASTICITY AND PAIN.
     Route: 065
  4. STELARA [Suspect]
     Active Substance: USTEKINUMAB
     Indication: PSORIASIS
     Route: 058
     Dates: start: 201303
  5. ETANERCEPT [Suspect]
     Active Substance: ETANERCEPT
     Indication: PRODUCT USED FOR UNKNOWN INDICATION
     Route: 065
     Dates: start: 200908, end: 201110
  6. PRAVASTATIN. [Concomitant]
     Active Substance: PRAVASTATIN
     Route: 048
     Dates: start: 20110421
  7. CITALOPRAM [Concomitant]
     Active Substance: CITALOPRAM HYDROBROMIDE
     Route: 048
     Dates: start: 20070910
  8. SILDENAFIL. [Concomitant]
     Active Substance: SILDENAFIL
     Route: 065
  9. FLEXERIL [Concomitant]
     Active Substance: CYCLOBENZAPRINE HYDROCHLORIDE
     Indication: MUSCLE SPASTICITY
     Dosage: AS NEEDED FOR SPASTICITY AND PAIN.
     Route: 065
  10. AMLODIPINE [Concomitant]
     Active Substance: AMLODIPINE BESYLATE
     Route: 048
     Dates: start: 20120607
  11. ROPINIROLE. [Concomitant]
     Active Substance: ROPINIROLE
     Route: 065
  12. NAPROXEN. [Concomitant]
     Active Substance: NAPROXEN
     Indication: PAIN
     Dosage: AS NEEDED FOR PAIN.
     Route: 065
  13. FLUTICASONE. [Concomitant]
     Active Substance: FLUTICASONE
     Route: 065
  14. FOLATE [Concomitant]
     Active Substance: FOLATE SODIUM
     Route: 065
  15. POTASSIUM CHLORIDE. [Concomitant]
     Active Substance: POTASSIUM CHLORIDE
     Route: 065
  16. STELARA [Suspect]
     Active Substance: USTEKINUMAB
     Indication: PSORIASIS
     Route: 058
  17. LISINOPRIL/HCTZ [Concomitant]
     Active Substance: HYDROCHLOROTHIAZIDE\LISINOPRIL
     Route: 048
     Dates: start: 20070910
  18. STELARA [Suspect]
     Active Substance: USTEKINUMAB
     Indication: PSORIASIS
     Route: 058
     Dates: start: 20130326, end: 20130423
  19. LISINOPRIL/HCTZ [Concomitant]
     Active Substance: HYDROCHLOROTHIAZIDE\LISINOPRIL
     Route: 048
     Dates: start: 20070910

REACTIONS (4)
  - Cellulitis [Recovering/Resolving]
  - Onychomycosis [Recovering/Resolving]
  - Sepsis [Recovered/Resolved]
  - Diabetes mellitus [Unknown]

NARRATIVE: CASE EVENT DATE: 20130607
